FAERS Safety Report 4664243-4 (Version None)
Quarter: 2005Q2

REPORT INFORMATION
  Report Type: 
  Country: None (occurrence: None)
  Receive Date: 20050516
  Receipt Date: 20050516
  Transmission Date: 20051028
  Serious: Yes (Other)
  Sender: FDA-Public Use
  Company Number: None

PATIENT
  Sex: Male
  Weight: 63.5036 kg

DRUGS (3)
  1. SONATA [Suspect]
     Indication: BIPOLAR I DISORDER
  2. AMBIEN [Suspect]
     Indication: MANIA
  3. . [Concomitant]

REACTIONS (1)
  - NO ADVERSE DRUG EFFECT [None]
